FAERS Safety Report 10706319 (Version 1)
Quarter: 2015Q1

REPORT INFORMATION
  Report Type: Spontaneous
  Country: IT (occurrence: IT)
  Receive Date: 20150113
  Receipt Date: 20150113
  Transmission Date: 20150721
  Serious: Yes (Other)
  Sender: FDA-Public Use
  Company Number: IT-ROCHE-1519569

PATIENT
  Age: 90 Year
  Sex: Female

DRUGS (8)
  1. CIPRALEX [Concomitant]
     Active Substance: ESCITALOPRAM OXALATE
     Route: 048
  2. SINVACOR [Concomitant]
     Active Substance: SIMVASTATIN
     Route: 048
  3. NITROCOR [Concomitant]
     Active Substance: NITROGLYCERIN
     Route: 062
  4. ROCEFIN [Suspect]
     Active Substance: CEFTRIAXONE SODIUM
     Indication: INFECTION
     Dosage: 1 G/3.5ML POWDER AND SOLVENT FOR SOLUTION FOR INJECTION
     Route: 030
     Dates: start: 20141204, end: 20141204
  5. CARDICOR [Concomitant]
     Active Substance: BISOPROLOL
     Dosage: 30 TABLETS OF 1.25 MG
     Route: 048
  6. PEPTAZOL (ITALY) [Concomitant]
     Route: 048
  7. LASIX [Concomitant]
     Active Substance: FUROSEMIDE
     Dosage: 25 MG TABLETS 30 TABLETS
     Route: 048
  8. MICARDIS [Concomitant]
     Active Substance: TELMISARTAN
     Dosage: 40 MG 14 TABLETS
     Route: 048

REACTIONS (3)
  - Throat tightness [Recovering/Resolving]
  - Erythema [Recovering/Resolving]
  - Pruritus [Recovering/Resolving]

NARRATIVE: CASE EVENT DATE: 20141204
